FAERS Safety Report 7550572-3 (Version None)
Quarter: 2011Q2

REPORT INFORMATION
  Report Type: 
  Country: None (occurrence: None)
  Receive Date: 20110616
  Receipt Date: 20110606
  Transmission Date: 20111010
  Serious: Yes (Hospitalization)
  Sender: FDA-Public Use
  Company Number: US-BIOGENIDEC-2011BI020774

PATIENT
  Age: 34 Year
  Sex: Female

DRUGS (2)
  1. TYSABRI [Suspect]
     Route: 042
     Dates: start: 20091013
  2. TYSABRI [Suspect]
     Indication: MULTIPLE SCLEROSIS
     Route: 042
     Dates: start: 20080813, end: 20090128

REACTIONS (12)
  - ANAPHYLACTIC SHOCK [None]
  - PAIN IN EXTREMITY [None]
  - MULTIPLE SCLEROSIS [None]
  - ASTHMA [None]
  - MALAISE [None]
  - MUSCULAR WEAKNESS [None]
  - WHEEZING [None]
  - ABASIA [None]
  - SCLERITIS [None]
  - DYSPNOEA [None]
  - VISUAL ACUITY REDUCED [None]
  - EYE PAIN [None]
